FAERS Safety Report 13425466 (Version 1)
Quarter: 2017Q2

REPORT INFORMATION
  Report Type: Spontaneous
  Country: US (occurrence: US)
  Receive Date: 20170411
  Receipt Date: 20170411
  Transmission Date: 20170830
  Serious: Yes (Other)
  Sender: FDA-Public Use
  Company Number: US-SHIRE-US201707696

PATIENT
  Age: 20 Year
  Sex: Female
  Weight: 82.54 kg

DRUGS (2)
  1. LIALDA [Suspect]
     Active Substance: MESALAMINE
     Indication: COLITIS ULCERATIVE
     Dosage: 4.8 G, 1X/DAY:QD (4 TABLETS 1.2 G)
     Route: 048
     Dates: start: 2015, end: 20170319
  2. SAFYRAL [Concomitant]
     Active Substance: DROSPIRENONE\ETHINYL ESTRADIOL\LEVOMEFOLATE CALCIUM
     Indication: CONTRACEPTION
     Dosage: 1 DF, 1X/DAY:QD
     Route: 048
     Dates: start: 2012

REACTIONS (10)
  - Acute kidney injury [Recovering/Resolving]
  - Blood urea abnormal [Recovering/Resolving]
  - Adverse event [Recovering/Resolving]
  - Asthenia [Recovering/Resolving]
  - Back pain [Recovering/Resolving]
  - Migraine [Not Recovered/Not Resolved]
  - Blood creatinine abnormal [Recovering/Resolving]
  - Pallor [Recovering/Resolving]
  - Dehydration [Recovering/Resolving]
  - Dizziness [Recovering/Resolving]

NARRATIVE: CASE EVENT DATE: 201602
